FAERS Safety Report 25259550 (Version 3)
Quarter: 2025Q4

REPORT INFORMATION
  Report Type: Spontaneous
  Country: US (occurrence: US)
  Receive Date: 20250501
  Receipt Date: 20251013
  Transmission Date: 20260118
  Serious: No
  Sender: LUPIN
  Company Number: US-LUPIN PHARMACEUTICALS INC.-2025-03635

PATIENT
  Age: 66 Year

DRUGS (1)
  1. PREDNISOLONE ACETATE [Suspect]
     Active Substance: PREDNISOLONE ACETATE
     Indication: Keratoconus
     Dosage: UNK, BID (1 DROP IN THE MORNING AND 1 DROP IN THE EVENING )

REACTIONS (5)
  - Product packaging quantity issue [Unknown]
  - Product dose omission issue [Unknown]
  - Extra dose administered [Unknown]
  - Drug ineffective [Unknown]
  - No adverse event [Unknown]
